FAERS Safety Report 20822117 (Version 3)
Quarter: 2022Q3

REPORT INFORMATION
  Report Type: Spontaneous
  Country: US (occurrence: US)
  Receive Date: 20220512
  Receipt Date: 20220909
  Transmission Date: 20221026
  Serious: No
  Sender: FDA-Public Use
  Company Number: US-PFIZER INC-202200561658

PATIENT
  Age: 55 Year
  Sex: Female

DRUGS (1)
  1. XELJANZ XR [Suspect]
     Active Substance: TOFACITINIB CITRATE
     Dosage: 11 MG, 1X/DAY
     Route: 048

REACTIONS (7)
  - Product dose omission in error [Unknown]
  - Product dose omission issue [Unknown]
  - Headache [Unknown]
  - Nasopharyngitis [Unknown]
  - Gastroenteritis viral [Recovering/Resolving]
  - Infection [Unknown]
  - Illness [Unknown]

NARRATIVE: CASE EVENT DATE: 20220101
